FAERS Safety Report 8971393 (Version 1)
Quarter: 2012Q4

REPORT INFORMATION
  Report Type: 
  Country: US (occurrence: US)
  Receive Date: 20121217
  Receipt Date: 20121217
  Transmission Date: 20130627
  Serious: No
  Sender: FDA-Public Use
  Company Number: US-PFIZER INC-2012315236

PATIENT
  Age: 84 Year
  Sex: Male
  Weight: 90.7 kg

DRUGS (2)
  1. GLIPIZIDE [Suspect]
     Indication: DIABETES
     Dosage: Unk
     Route: 048
  2. ACTOS [Suspect]
     Indication: DIABETES
     Dosage: 50 mg, daily
     Route: 048
     Dates: end: 20121207

REACTIONS (1)
  - Blood glucose decreased [Unknown]
